FAERS Safety Report 10235496 (Version 1)
Quarter: 2014Q2

REPORT INFORMATION
  Report Type: Spontaneous
  Country: IT (occurrence: IT)
  Receive Date: 20140613
  Receipt Date: 20140613
  Transmission Date: 20141212
  Serious: Yes (Other)
  Sender: FDA-Public Use
  Company Number: IT-WATSON-2014-12296

PATIENT
  Age: 79 Year
  Sex: Female

DRUGS (6)
  1. ENALAPRIL (UNKNOWN) [Suspect]
     Indication: CARDIAC FAILURE
     Dosage: 5 MG, DAILY
     Route: 048
     Dates: start: 20140101, end: 20140506
  2. ALDACTONE                          /00006201/ [Suspect]
     Indication: HYPERTENSION
     Dosage: 100 MG, DAILY
     Dates: start: 20140101, end: 20140506
  3. LAEVOLAC [Concomitant]
     Indication: ASTRINGENT THERAPY
     Dosage: 66,7 G/100 ML, UNK
     Route: 048
     Dates: start: 20140101, end: 20140506
  4. LASIX                              /00032601/ [Concomitant]
     Indication: OEDEMA
     Dosage: 25 MG, UNK
     Route: 048
     Dates: start: 20140101, end: 20140506
  5. BISOPROLOL HEMIFUMARATE [Concomitant]
     Indication: HYPERTENSION
     Dosage: 10 MG, UNK
     Route: 048
     Dates: start: 20140101, end: 20140506
  6. PANTOPRAZOLE SODIUM [Concomitant]
     Indication: PROPHYLAXIS AGAINST GASTROINTESTINAL ULCER
     Dosage: 40 MG, UNK
     Route: 048
     Dates: start: 20140101, end: 20140506

REACTIONS (2)
  - Hyperkalaemia [Recovered/Resolved]
  - Drug interaction [Recovered/Resolved]
